FAERS Safety Report 5020224-2 (Version None)
Quarter: 2006Q2

REPORT INFORMATION
  Report Type: 
  Country: None (occurrence: None)
  Receive Date: 20060602
  Receipt Date: 20060505
  Transmission Date: 20061013
  Serious: No
  Sender: FDA-Public Use
  Company Number: DE200605005071

PATIENT
  Age: 43 Year
  Sex: Female

DRUGS (11)
  1. CYMBALTA [Suspect]
     Indication: DEPRESSION
     Dosage: 30 + 60 MG, EACH MORNING, ORAL - SEE IMAGE
     Route: 048
     Dates: start: 20060401, end: 20060401
  2. CYMBALTA [Suspect]
     Indication: DEPRESSION
     Dosage: 30 + 60 MG, EACH MORNING, ORAL - SEE IMAGE
     Route: 048
     Dates: start: 20060401, end: 20060401
  3. CYMBALTA [Suspect]
     Indication: DEPRESSION
     Dosage: 30 + 60 MG, EACH MORNING, ORAL - SEE IMAGE
     Route: 048
     Dates: start: 20060410, end: 20060401
  4. CYMBALTA [Suspect]
     Indication: DEPRESSION
     Dosage: 30 + 60 MG, EACH MORNING, ORAL - SEE IMAGE
     Route: 048
     Dates: start: 20060410, end: 20060401
  5. CYMBALTA [Suspect]
     Indication: DEPRESSION
     Dosage: 30 + 60 MG, EACH MORNING, ORAL - SEE IMAGE
     Route: 048
     Dates: start: 20060501
  6. CYMBALTA [Suspect]
     Indication: DEPRESSION
     Dosage: 30 + 60 MG, EACH MORNING, ORAL - SEE IMAGE
     Route: 048
     Dates: start: 20060501
  7. SANDIMMUN (CICLOSPORN) [Concomitant]
  8. DECORTIN (PREDNISONE) [Concomitant]
  9. MORPHINE [Concomitant]
  10. PANTOZOL   /GFR/(PANTOPRAZOLE SODIUM) [Concomitant]
  11. BISOPROLOL FUMARATE [Concomitant]

REACTIONS (5)
  - ALANINE AMINOTRANSFERASE INCREASED [None]
  - CONDITION AGGRAVATED [None]
  - GAMMA-GLUTAMYLTRANSFERASE INCREASED [None]
  - SLEEP DISORDER [None]
  - TRANSAMINASES INCREASED [None]
